FAERS Safety Report 11012809 (Version 1)
Quarter: 2015Q2

REPORT INFORMATION
  Report Type: Spontaneous
  Country: FR (occurrence: None)
  Receive Date: 20150409
  Receipt Date: 20150409
  Transmission Date: 20150821
  Serious: Yes (Other)
  Sender: FDA-Public Use
  Company Number: 2809833

PATIENT
  Age: 62 Year
  Sex: Female

DRUGS (6)
  1. CARBOPLATIN. [Suspect]
     Active Substance: CARBOPLATIN
     Indication: THYROID CANCER
     Route: 042
     Dates: start: 20150211, end: 20150306
  2. ONDANSETRONE ACCORD HEALTHCARE [Concomitant]
  3. METHYLPREDNISOLONE. [Concomitant]
     Active Substance: METHYLPREDNISOLONE
  4. PACLITAXEL. [Suspect]
     Active Substance: PACLITAXEL
     Indication: THYROID CANCER
     Route: 042
     Dates: start: 20150211, end: 20150306
  5. POLARAMINE [Concomitant]
     Active Substance: DEXCHLORPHENIRAMINE MALEATE
  6. AZANTAC [Concomitant]
     Active Substance: RANITIDINE HYDROCHLORIDE

REACTIONS (5)
  - Somnolence [None]
  - Face oedema [None]
  - Hot flush [None]
  - Erythema [None]
  - Blood pressure increased [None]

NARRATIVE: CASE EVENT DATE: 20150306
